FAERS Safety Report 17120113 (Version 1)
Quarter: 2019Q4

REPORT INFORMATION
  Report Type: Spontaneous
  Country: HU (occurrence: HU)
  Receive Date: 20191206
  Receipt Date: 20191206
  Transmission Date: 20200122
  Serious: Yes (Other)
  Sender: FDA-Public Use
  Company Number: NVSC2019HU058011

PATIENT
  Age: 58 Year
  Sex: Female

DRUGS (3)
  1. AMOXICILLIN,CLAVULANIC ACID [Suspect]
     Active Substance: AMOXICILLIN\CLAVULANIC ACID
     Indication: UPPER RESPIRATORY TRACT INFECTION
     Dosage: UNK
     Route: 065
  2. AMOXICILLIN,CLAVULANIC ACID [Suspect]
     Active Substance: AMOXICILLIN\CLAVULANIC ACID
     Indication: SINUSITIS
  3. AMOXICILLIN,CLAVULANIC ACID [Suspect]
     Active Substance: AMOXICILLIN\CLAVULANIC ACID
     Indication: PHARYNGITIS

REACTIONS (6)
  - Nasopharyngitis [Unknown]
  - Infection [Unknown]
  - Cough [Recovered/Resolved]
  - Tracheobronchitis [Recovered/Resolved]
  - Pharyngitis [Unknown]
  - Asthma [Unknown]

NARRATIVE: CASE EVENT DATE: 2010
